FAERS Safety Report 7313039-3 (Version None)
Quarter: 2011Q1

REPORT INFORMATION
  Report Type: 
  Country: None (occurrence: None)
  Receive Date: 20110225
  Receipt Date: 20110216
  Transmission Date: 20110831
  Serious: Yes (Hospitalization)
  Sender: FDA-Public Use
  Company Number: US-BIOGENIDEC-2009BI040735

PATIENT
  Age: 51 Year
  Sex: Female

DRUGS (1)
  1. AVONEX [Suspect]
     Indication: MULTIPLE SCLEROSIS
     Route: 030
     Dates: start: 20071027

REACTIONS (7)
  - TIBIA FRACTURE [None]
  - DEVICE ISSUE [None]
  - PATELLA FRACTURE [None]
  - ANKLE FRACTURE [None]
  - FALL [None]
  - JOINT DISLOCATION [None]
  - MUSCLE STRAIN [None]
